FAERS Safety Report 15961209 (Version 1)
Quarter: 2019Q1

REPORT INFORMATION
  Report Type: Spontaneous
  Country: CA (occurrence: CA)
  Receive Date: 20190214
  Receipt Date: 20190214
  Transmission Date: 20190417
  Serious: Yes (Other)
  Sender: FDA-Public Use
  Company Number: CA-INDIVIOR LIMITED-INDV-117687-2019

PATIENT
  Age: 18 Year
  Sex: Male

DRUGS (1)
  1. SUBOXONE [Suspect]
     Active Substance: BUPRENORPHINE HYDROCHLORIDE\NALOXONE HYDROCHLORIDE
     Indication: DRUG WITHDRAWAL SYNDROME
     Dosage: 2 MG ONCE DAILY
     Route: 060

REACTIONS (10)
  - Emergency care examination [Recovered/Resolved]
  - Vomiting [Recovered/Resolved]
  - Face oedema [Recovered/Resolved]
  - Fall [Recovered/Resolved]
  - Psychomotor hyperactivity [Recovered/Resolved]
  - Loss of control of legs [Recovered/Resolved]
  - Blood glucose decreased [Recovered/Resolved]
  - Aphasia [Recovered/Resolved]
  - Hypotension [Recovered/Resolved]
  - Mydriasis [Recovered/Resolved]
